FAERS Safety Report 8801371 (Version 1)
Quarter: 2012Q4

REPORT INFORMATION
  Report Type: 
  Country: US (occurrence: US)
  Receive Date: 20120921
  Receipt Date: 20120921
  Transmission Date: 20130627
  Serious: Yes (Other)
  Sender: FDA-Public Use
  Company Number: US-BAYER-2012-096808

PATIENT
  Sex: Male

DRUGS (1)
  1. CIPRO [Suspect]
     Indication: URINARY TRACT INFECTION

REACTIONS (2)
  - Orchitis [None]
  - Testicular pain [None]
